FAERS Safety Report 7125024-5 (Version None)
Quarter: 2010Q4

REPORT INFORMATION
  Report Type: 
  Country: None (occurrence: None)
  Receive Date: 20101123
  Receipt Date: 20101123
  Transmission Date: 20110411
  Serious: Yes (Other)
  Sender: FDA-Public Use
  Company Number: None

PATIENT
  Sex: Female
  Weight: 59.8748 kg

DRUGS (1)
  1. SERTRALINE HYDROCHLORIDE [Suspect]
     Indication: DEPRESSION
     Dosage: 100MG 1 DAILY PO
     Route: 048
     Dates: start: 20101108, end: 20101112

REACTIONS (2)
  - DYSGEUSIA [None]
  - PRODUCT SUBSTITUTION ISSUE [None]
